FAERS Safety Report 16489602 (Version 1)
Quarter: 2019Q2

REPORT INFORMATION
  Report Type: Spontaneous
  Country: US (occurrence: US)
  Receive Date: 20190628
  Receipt Date: 20190628
  Transmission Date: 20190711
  Serious: No
  Sender: FDA-Public Use
  Company Number: US-ACCORD-070320

PATIENT
  Age: 39 Year
  Sex: Male
  Weight: 81.65 kg

DRUGS (3)
  1. CLONAZEPAM ACCORD [Suspect]
     Active Substance: CLONAZEPAM
     Indication: ANXIETY
     Dosage: STRENGTH: 1 MG
     Route: 048
     Dates: start: 201804
  2. SEROQUEL [Concomitant]
     Active Substance: QUETIAPINE FUMARATE
     Dosage: STRENGTH: 50 MG (AT NIGHT)
  3. BUPROPION/BUPROPION HYDROCHLORIDE [Concomitant]
     Dates: start: 201801

REACTIONS (4)
  - Panic attack [Recovering/Resolving]
  - Anxiety [Not Recovered/Not Resolved]
  - Product substitution issue [Unknown]
  - Somnolence [Unknown]
